FAERS Safety Report 17851291 (Version 12)
Quarter: 2022Q2

REPORT INFORMATION
  Report Type: Report from Study
  Country: US (occurrence: US)
  Receive Date: 20200602
  Receipt Date: 20220525
  Transmission Date: 20220720
  Serious: Yes (Other)
  Sender: FDA-Public Use
  Company Number: US-SHIRE-US202017944

PATIENT
  Sex: Male
  Weight: 75.283 kg

DRUGS (69)
  1. HUMAN IMMUNOGLOBULIN G [Suspect]
     Active Substance: HUMAN IMMUNOGLOBULIN G
     Indication: Immunodeficiency common variable
     Dosage: 35 GRAM, Q4WEEKS
     Route: 042
     Dates: start: 20060407
  2. HUMAN IMMUNOGLOBULIN G [Suspect]
     Active Substance: HUMAN IMMUNOGLOBULIN G
     Indication: Humoral immune defect
     Dosage: 35 GRAM, Q4WEEKS
     Route: 042
     Dates: start: 20060922
  3. HUMAN IMMUNOGLOBULIN G [Suspect]
     Active Substance: HUMAN IMMUNOGLOBULIN G
     Indication: Asthma
     Dosage: 35 GRAM, Q4WEEKS
     Route: 042
     Dates: start: 20150206
  4. HUMAN IMMUNOGLOBULIN G [Suspect]
     Active Substance: HUMAN IMMUNOGLOBULIN G
     Dosage: 35 GRAM, Q4WEEKS
     Route: 042
     Dates: start: 20150326
  5. HUMAN IMMUNOGLOBULIN G [Suspect]
     Active Substance: HUMAN IMMUNOGLOBULIN G
     Dosage: 35 GRAM, Q4WEEKS
     Route: 042
     Dates: start: 20150401
  6. HUMAN IMMUNOGLOBULIN G [Suspect]
     Active Substance: HUMAN IMMUNOGLOBULIN G
     Dosage: 35 GRAM, Q4WEEKS
     Route: 042
     Dates: start: 20200407
  7. CRESTOR [Concomitant]
     Active Substance: ROSUVASTATIN CALCIUM
     Dosage: UNK
     Route: 065
  8. XOLAIR [Concomitant]
     Active Substance: OMALIZUMAB
     Dosage: UNK
     Route: 065
  9. ALTABAX [Concomitant]
     Active Substance: RETAPAMULIN
     Dosage: UNK
     Route: 065
  10. FLEXERIL [Concomitant]
     Active Substance: CYCLOBENZAPRINE HYDROCHLORIDE
  11. FOLIC ACID [Concomitant]
     Active Substance: FOLIC ACID
  12. HIBICLENS [Concomitant]
     Active Substance: CHLORHEXIDINE GLUCONATE
  13. NEILMED SINUS RINSE [Concomitant]
     Active Substance: SODIUM BICARBONATE\SODIUM CHLORIDE
  14. MINERALS\VITAMINS [Concomitant]
     Active Substance: MINERALS\VITAMINS
  15. VISTARIL [Concomitant]
     Active Substance: HYDROXYZINE PAMOATE
  16. GUAIFENESIN AND DEXTROMETHORPHAN [Concomitant]
     Active Substance: DEXTROMETHORPHAN\GUAIFENESIN
  17. ALBUTEROL SULFATE [Concomitant]
     Active Substance: ALBUTEROL SULFATE
  18. ACETAMINOPHEN [Concomitant]
     Active Substance: ACETAMINOPHEN
  19. DIPHENHYDRAMINE [Concomitant]
     Active Substance: DIPHENHYDRAMINE
  20. SODIUM CHLORIDE [Concomitant]
     Active Substance: SODIUM CHLORIDE
  21. SODIUM CHLORIDE [Concomitant]
     Active Substance: SODIUM CHLORIDE
  22. EPINEPHRINE [Concomitant]
     Active Substance: EPINEPHRINE
  23. Lmx [Concomitant]
  24. SOLU-MEDROL [Concomitant]
     Active Substance: METHYLPREDNISOLONE SODIUM SUCCINATE
  25. FLUBLOK QUADRIVALENT NOS [Concomitant]
     Active Substance: INFLUENZA VIRUS VACCINE
  26. SINGULAIR [Concomitant]
     Active Substance: MONTELUKAST SODIUM
  27. OLMESARTAN MEDOXOMIL [Concomitant]
     Active Substance: OLMESARTAN MEDOXOMIL
  28. CLINDAMYCIN PHOSPHATE [Concomitant]
     Active Substance: CLINDAMYCIN PHOSPHATE
  29. NEXIUM [Concomitant]
     Active Substance: ESOMEPRAZOLE MAGNESIUM
  30. CALCIUM [Concomitant]
     Active Substance: CALCIUM
  31. DILAUDID [Concomitant]
     Active Substance: HYDROMORPHONE HYDROCHLORIDE
  32. VITAMIN B12 [Concomitant]
     Active Substance: CYANOCOBALAMIN
  33. VITAMIN D3 [Concomitant]
     Active Substance: CHOLECALCIFEROL
  34. HYPOCHLOROUS ACID [Concomitant]
     Active Substance: HYPOCHLOROUS ACID
  35. FISH OIL\OMEGA-3 FATTY ACIDS [Concomitant]
     Active Substance: FISH OIL\OMEGA-3 FATTY ACIDS
  36. ZOVIRAX [Concomitant]
     Active Substance: ACYCLOVIR
  37. PREVIDENT [Concomitant]
     Active Substance: SODIUM FLUORIDE
  38. AMITIZA [Concomitant]
     Active Substance: LUBIPROSTONE
  39. CALCIPOTRIENE [Concomitant]
     Active Substance: CALCIPOTRIENE
  40. DEPO-TESTOSTERONE [Concomitant]
     Active Substance: TESTOSTERONE CYPIONATE
  41. ALBUTEROL\IPRATROPIUM [Concomitant]
     Active Substance: ALBUTEROL\IPRATROPIUM
  42. COMBIVENT RESPIMAT [Concomitant]
     Active Substance: ALBUTEROL SULFATE\IPRATROPIUM BROMIDE
  43. CHONDROITIN SULFATE A\GLUCOSAMINE [Concomitant]
     Active Substance: CHONDROITIN SULFATE A\GLUCOSAMINE
  44. ALLEGRA [Concomitant]
     Active Substance: FEXOFENADINE HYDROCHLORIDE
  45. KEPPRA [Concomitant]
     Active Substance: LEVETIRACETAM
  46. THERATEARS [Concomitant]
     Active Substance: CARBOXYMETHYLCELLULOSE SODIUM
  47. CIALIS [Concomitant]
     Active Substance: TADALAFIL
  48. SYSTANE (HYPROMELLOSE 2910 (4000 MPA.S)) [Concomitant]
     Active Substance: HYPROMELLOSE 2910 (4000 MPA.S)
     Route: 050
  49. VIMPAT [Concomitant]
     Active Substance: LACOSAMIDE
  50. TRAZODONE [Concomitant]
     Active Substance: TRAZODONE HYDROCHLORIDE
  51. LACTULOSE [Concomitant]
     Active Substance: LACTULOSE
  52. NORVASC [Concomitant]
     Active Substance: AMLODIPINE BESYLATE
  53. SODIUM FLUORIDE\STANNOUS FLUORIDE [Concomitant]
     Active Substance: SODIUM FLUORIDE\STANNOUS FLUORIDE
  54. MINERALS\VITAMINS [Concomitant]
     Active Substance: MINERALS\VITAMINS
  55. OLMESARTAN [Concomitant]
     Active Substance: OLMESARTAN
  56. SODIUM CHLORIDE [Concomitant]
     Active Substance: SODIUM CHLORIDE
  57. Ayr [Concomitant]
  58. ALKALOL [Concomitant]
  59. MUCINEX [Concomitant]
     Active Substance: GUAIFENESIN
     Route: 065
  60. PROLIA [Concomitant]
     Active Substance: DENOSUMAB
     Route: 065
  61. PHENOBARBITAL [Concomitant]
     Active Substance: PHENOBARBITAL
  62. CEFTIN [Concomitant]
     Active Substance: CEFUROXIME AXETIL
  63. FOSAMAX [Concomitant]
     Active Substance: ALENDRONATE SODIUM
  64. SOMA [Concomitant]
     Active Substance: CARISOPRODOL
  65. TYLENOL ARTHRITIS PAIN [Concomitant]
     Active Substance: ACETAMINOPHEN
  66. DICYCLOMINE [Concomitant]
     Active Substance: DICYCLOMINE HYDROCHLORIDE
  67. VIMPAT [Concomitant]
     Active Substance: LACOSAMIDE
  68. DOXYCYCLINE [Concomitant]
     Active Substance: DOXYCYCLINE
  69. Alax [Concomitant]

REACTIONS (23)
  - Seizure [Unknown]
  - Capillary leak syndrome [Unknown]
  - Seasonal allergy [Unknown]
  - Oral surgery [Unknown]
  - Back disorder [Unknown]
  - Peripheral swelling [Unknown]
  - Dental operation [Unknown]
  - Osteoporosis [Unknown]
  - Epistaxis [Unknown]
  - Infusion related reaction [Unknown]
  - Aortic aneurysm [Unknown]
  - Sinusitis [Unknown]
  - Cardiac murmur [Unknown]
  - Amnesia [Unknown]
  - Pain [Unknown]
  - Chills [Unknown]
  - Hypersensitivity [Unknown]
  - Vomiting [Recovering/Resolving]
  - Headache [Recovered/Resolved]
  - Nausea [Unknown]
  - Fatigue [Unknown]
  - Migraine [Recovering/Resolving]
  - Influenza like illness [Recovering/Resolving]
